FAERS Safety Report 22253127 (Version 8)
Quarter: 2024Q1

REPORT INFORMATION
  Report Type: Report from Study
  Country: BE (occurrence: BE)
  Receive Date: 20230426
  Receipt Date: 20240209
  Transmission Date: 20240409
  Serious: Yes (Other)
  Sender: FDA-Public Use
  Company Number: BE-ABBVIE-4741377

PATIENT
  Sex: Female

DRUGS (20)
  1. CARBIDOPA\LEVODOPA [Suspect]
     Active Substance: CARBIDOPA\LEVODOPA
     Indication: Parkinson^s disease
     Dosage: MD: 3.5 ML, CD: 2.3 ML/H?DURATION - 16 HOURS
     Route: 050
     Dates: start: 20230424, end: 20230425
  2. CARBIDOPA\LEVODOPA [Suspect]
     Active Substance: CARBIDOPA\LEVODOPA
     Route: 050
     Dates: start: 20200527
  3. CARBIDOPA\LEVODOPA [Suspect]
     Active Substance: CARBIDOPA\LEVODOPA
     Dosage: CD: 2.2 ML/H DURING 16 HOURS
     Route: 050
     Dates: start: 20230425, end: 20230426
  4. CARBIDOPA\LEVODOPA [Suspect]
     Active Substance: CARBIDOPA\LEVODOPA
     Dosage: CD: 2.1 ML/H DURING 16 HOURS
     Route: 050
     Dates: start: 20230426, end: 20230504
  5. CARBIDOPA\LEVODOPA [Suspect]
     Active Substance: CARBIDOPA\LEVODOPA
     Dosage: MD: 6.5 ML, CD: 2.4 ML/H, ED: 1.5 ML, CND: 1.3 ML/H DURING 24 HOUR
     Route: 050
     Dates: start: 20230504, end: 20230615
  6. CARBIDOPA\LEVODOPA [Suspect]
     Active Substance: CARBIDOPA\LEVODOPA
     Dosage: MD: 6.0 ML, CD: 1.5 ML DURING 24 HOURS
     Route: 050
     Dates: start: 20240114
  7. CARBIDOPA\LEVODOPA [Suspect]
     Active Substance: CARBIDOPA\LEVODOPA
     Dosage: MD: 6.0 ML, CND: 1.4 ML/H DURING 24 HOURS
     Route: 050
     Dates: start: 20230615, end: 20230615
  8. CARBIDOPA\LEVODOPA [Suspect]
     Active Substance: CARBIDOPA\LEVODOPA
     Dosage: MD: 3.0 ML, CD: 2.2 ML/H, ED: 1.5 ML DURING 24 HOURS?LAST ADMIN DATE 2023
     Route: 050
     Dates: start: 20230615
  9. CARBIDOPA\LEVODOPA [Suspect]
     Active Substance: CARBIDOPA\LEVODOPA
     Route: 050
     Dates: start: 2023, end: 2023
  10. LORMETAZEPAM GNT [Concomitant]
     Indication: Product used for unknown indication
  11. ASPIRIN [Concomitant]
     Active Substance: ASPIRIN
     Indication: Product used for unknown indication
     Dosage: FORM STRENGTH: 80
  12. AMANTADINE [Concomitant]
     Active Substance: AMANTADINE
     Indication: Product used for unknown indication
     Dosage: FORM STRENGTH: 100
  13. BENSERAZIDE\LEVODOPA [Concomitant]
     Active Substance: BENSERAZIDE\LEVODOPA
     Indication: Product used for unknown indication
     Dosage: FORM STRENGTH: 250?FREQUENCY TEXT: 06.00, 12.00
     Route: 065
  14. BENSERAZIDE\LEVODOPA [Concomitant]
     Active Substance: BENSERAZIDE\LEVODOPA
     Indication: Product used for unknown indication
     Dosage: SINCE DUODOPA: 0.5 TABLET?FORM STRENGTH: 125?FREQUENCY TEXT: AT 06.00 IN THE MORNING
     Route: 065
  15. BENSERAZIDE\LEVODOPA [Concomitant]
     Active Substance: BENSERAZIDE\LEVODOPA
     Indication: Product used for unknown indication
     Dosage: FORM STRENGTH: 250?FREQUENCY TEXT: 08.00, 10.00, 14.00, 16.00, 18.00, 20.00
     Route: 065
  16. BENSERAZIDE\LEVODOPA [Concomitant]
     Active Substance: BENSERAZIDE\LEVODOPA
     Indication: Product used for unknown indication
     Dosage: BEFORE DUODOPA: 0.5 TABLET  MAX 2 TABLETS 6 HOUR INTERVAL?FORM STRENGTH: 125?FREQUENCY TEXT: IF N...
     Route: 065
  17. Pantomed [Concomitant]
     Indication: Product used for unknown indication
     Dosage: FORM STRENGTH: 40
  18. MICARDIS [Concomitant]
     Active Substance: TELMISARTAN
     Indication: Product used for unknown indication
  19. APOMORPHINE HYDROCHLORIDE [Concomitant]
     Active Substance: APOMORPHINE HYDROCHLORIDE
     Indication: Product used for unknown indication
     Dosage: 1 MG- MAX 10 MG/ 24 HOURS- 20 MINUTES INTERVAL?PEN
  20. EFFEXOR [Concomitant]
     Active Substance: VENLAFAXINE HYDROCHLORIDE
     Indication: Product used for unknown indication
     Dates: start: 202112

REACTIONS (16)
  - Rehabilitation therapy [Not Recovered/Not Resolved]
  - Dyskinesia [Recovering/Resolving]
  - Insomnia [Recovering/Resolving]
  - Mobility decreased [Recovering/Resolving]
  - Movement disorder [Unknown]
  - Unevaluable event [Recovering/Resolving]
  - Dysstasia [Unknown]
  - Off label use [Unknown]
  - Speech disorder [Unknown]
  - Wheelchair user [Unknown]
  - Feeding disorder [Unknown]
  - Loss of personal independence in daily activities [Unknown]
  - Terminal state [Unknown]
  - Asthenia [Unknown]
  - Refusal of treatment by patient [Unknown]
  - Loss of personal independence in daily activities [Unknown]

NARRATIVE: CASE EVENT DATE: 20230101
